FAERS Safety Report 9944097 (Version 2)
Quarter: 2014Q1

REPORT INFORMATION
  Report Type: Spontaneous
  Country: US (occurrence: US)
  Receive Date: 20140303
  Receipt Date: 20140303
  Transmission Date: 20141002
  Serious: No
  Sender: FDA-Public Use
  Company Number: US-GILEAD-2012-0052064

PATIENT
  Age: 84 Year
  Sex: Male

DRUGS (5)
  1. RANEXA [Suspect]
     Indication: PRODUCT USED FOR UNKNOWN INDICATION
     Dosage: 500 MG, BID
     Route: 048
     Dates: start: 201202
  2. TOPROL [Concomitant]
  3. STATIN                             /00036501/ [Concomitant]
  4. NEXIUM                             /01479302/ [Concomitant]
  5. MILK OF MAGNESIA [Concomitant]

REACTIONS (4)
  - Dyskinesia [Recovered/Resolved]
  - Feeling cold [Recovered/Resolved]
  - Throat tightness [Recovered/Resolved]
  - Constipation [Unknown]
